FAERS Safety Report 11891722 (Version 1)
Quarter: 2016Q1

REPORT INFORMATION
  Report Type: Spontaneous
  Country: GB (occurrence: GB)
  Receive Date: 20160106
  Receipt Date: 20160106
  Transmission Date: 20160526
  Serious: Yes (Hospitalization)
  Sender: FDA-Public Use
  Company Number: PHFR2015GB009883

PATIENT
  Sex: Male

DRUGS (1)
  1. IMATINIB [Suspect]
     Active Substance: IMATINIB
     Indication: GASTROINTESTINAL CARCINOMA
     Dosage: UNK
     Route: 065
     Dates: start: 20151203

REACTIONS (7)
  - Malaise [Unknown]
  - Product use issue [Unknown]
  - Cholecystitis [Unknown]
  - Abdominal pain [Unknown]
  - Breakthrough pain [Recovered/Resolved]
  - Food intolerance [Unknown]
  - Cold sweat [Unknown]
